FAERS Safety Report 7568641-0 (Version None)
Quarter: 2011Q2

REPORT INFORMATION
  Report Type: 
  Country: None (occurrence: None)
  Receive Date: 20110623
  Receipt Date: 20110618
  Transmission Date: 20111010
  Serious: Yes (Hospitalization)
  Sender: FDA-Public Use
  Company Number: US-BRISTOL-MYERS SQUIBB COMPANY-15843626

PATIENT
  Age: 77 Year
  Sex: Male
  Weight: 58 kg

DRUGS (1)
  1. IPILIMUMAB [Suspect]
     Indication: MALIGNANT MELANOMA
     Dosage: LAST DOSE:09MAY11 10MG/KG OVER 90MIN ON DAY 1Q12WEEKS
     Route: 042
     Dates: start: 20110307, end: 20110509

REACTIONS (4)
  - PNEUMONIA [None]
  - HYPONATRAEMIA [None]
  - HIP FRACTURE [None]
  - ACUTE RESPIRATORY FAILURE [None]
